FAERS Safety Report 4587323-0 (Version None)
Quarter: 2005Q1

REPORT INFORMATION
  Report Type: 
  Country: None (occurrence: None)
  Receive Date: 20050215
  Receipt Date: 20050204
  Transmission Date: 20050727
  Serious: No
  Sender: FDA-Public Use
  Company Number: 2005AP00868

PATIENT
  Age: 29 Year
  Sex: Male
  Weight: 90 kg

DRUGS (5)
  1. ATENOLOL [Suspect]
     Dosage: 25 MG  DAILY
     Dates: start: 20030923
  2. RISPERIDONE [Suspect]
     Indication: SCHIZOPHRENIA
     Dosage: 2 MG DAILY
     Dates: start: 20030925, end: 20030925
  3. FLUVOXAMINE MALEATE [Suspect]
     Indication: DEPRESSION
     Dosage: 100 MG DAILY
     Dates: start: 20030923, end: 20031001
  4. CLOZAPINE [Suspect]
     Indication: SCHIZOPHRENIA
     Dosage: 50 MG DAILY
     Dates: start: 20030924, end: 20030924
  5. ZOLPIDEM TARTRATE [Suspect]
     Dosage: 100 MG DAILY
     Dates: start: 20030923

REACTIONS (5)
  - ANGIONEUROTIC OEDEMA [None]
  - DRY SKIN [None]
  - ERYTHEMA [None]
  - SKIN FISSURES [None]
  - SWOLLEN TONGUE [None]
